FAERS Safety Report 9060583 (Version 2)
Quarter: 2013Q1

REPORT INFORMATION
  Report Type: Report from Study
  Country: AU (occurrence: AU)
  Receive Date: 20130212
  Receipt Date: 20130220
  Transmission Date: 20140127
  Serious: Yes (Hospitalization)
  Sender: FDA-Public Use
  Company Number: AU-VERTEX PHARMACEUTICALS INC.-2013-001904

PATIENT
  Age: 60 None
  Sex: Male
  Weight: 83 kg

DRUGS (3)
  1. VX-950 (TELAPREVIR) [Suspect]
     Indication: PRODUCT USED FOR UNKNOWN INDICATION
     Dosage: 750 MG, TID
     Dates: start: 20121010
  2. PEGASYS [Suspect]
     Indication: HEPATITIS C
     Dosage: DOSAGE FORM: UNSPECIFIED
     Route: 065
     Dates: start: 20121010
  3. RIBAVIRIN [Suspect]
     Indication: HEPATITIS C
     Dosage: DOSAGE FORM: UNSPECIFIED
     Route: 065
     Dates: start: 20121010

REACTIONS (5)
  - Sepsis [Unknown]
  - Nervous system disorder [Unknown]
  - Pneumococcal bacteraemia [Recovered/Resolved]
  - Renal failure acute [Recovered/Resolved]
  - Syncope [Recovered/Resolved]
